FAERS Safety Report 6866076-7 (Version None)
Quarter: 2010Q3

REPORT INFORMATION
  Report Type: 
  Country: None (occurrence: None)
  Receive Date: 20100722
  Receipt Date: 20100717
  Transmission Date: 20110219
  Serious: Yes (Life-Threatening, Disabling, Other)
  Sender: FDA-Public Use
  Company Number: PHHY2010US41700

PATIENT
  Sex: Female
  Weight: 56 kg

DRUGS (4)
  1. EXJADE [Suspect]
     Indication: LYMPHOPROLIFERATIVE DISORDER
     Dosage: 2000 MG, DAILY
     Route: 048
     Dates: start: 20060608, end: 20100528
  2. EXJADE [Suspect]
     Indication: IRON OVERLOAD
     Dosage: 1000 MG, DAILY
     Route: 048
     Dates: end: 20100602
  3. EXJADE [Suspect]
     Dosage: 2000 MG, QD
     Route: 048
  4. BLOOD TRANSFUSION, AUXILIARY PRODUCTS [Concomitant]
     Dosage: 2 PITS EVERY TWO WEEKS

REACTIONS (8)
  - ANAEMIA [None]
  - COLONOSCOPY [None]
  - GASTROINTESTINAL HAEMORRHAGE [None]
  - GRAM STAIN POSITIVE [None]
  - HAEMOGLOBIN DECREASED [None]
  - HAEMORRHAGE [None]
  - SERUM FERRITIN INCREASED [None]
  - STOOL ANALYSIS ABNORMAL [None]
